FAERS Safety Report 4427275-7 (Version None)
Quarter: 2004Q3

REPORT INFORMATION
  Report Type: 
  Country: None (occurrence: None)
  Receive Date: 20040811
  Receipt Date: 20040729
  Transmission Date: 20050211
  Serious: Yes (Hospitalization)
  Sender: FDA-Public Use
  Company Number: 2004-BP-06218RO

PATIENT
  Age: 26 Year
  Sex: Male

DRUGS (6)
  1. PREDNISONE TAB [Suspect]
     Indication: NON-HODGKIN'S LYMPHOMA
     Dates: start: 20040430
  2. GEMCITABINE (GEMCITABINE) [Suspect]
     Indication: NON-HODGKIN'S LYMPHOMA
     Dosage: 1247 MG CYCLIC (NR), IV
     Route: 042
     Dates: start: 20040430
  3. CYCLOPHOSPHAMIDE [Suspect]
     Indication: NON-HODGKIN'S LYMPHOMA
     Dosage: 1567 MG CYCLIC
  4. ADRIAMYCIN (DOXORUBICIN)(DOXORUBICIN) [Suspect]
     Indication: NON-HODGKIN'S LYMPHOMA
     Dosage: 100 MG CYCLIC
     Dates: start: 20040430
  5. VINCRISTINE [Suspect]
     Indication: NON-HODGKIN'S LYMPHOMA
     Dosage: 2 MG CYCLIC
     Dates: start: 20040430
  6. G-CSF (GRANULOCYTE COLONY STIMULATING FACOTR) [Concomitant]

REACTIONS (6)
  - FEBRILE NEUTROPENIA [None]
  - HYPOKALAEMIA [None]
  - HYPONATRAEMIA [None]
  - HYPOVOLAEMIA [None]
  - MUCOSAL INFLAMMATION [None]
  - PHARYNGOLARYNGEAL PAIN [None]
